FAERS Safety Report 13583854 (Version 2)
Quarter: 2017Q2

REPORT INFORMATION
  Report Type: Spontaneous
  Country: US (occurrence: US)
  Receive Date: 20170526
  Receipt Date: 20170601
  Transmission Date: 20170830
  Serious: Yes (Other)
  Sender: FDA-Public Use
  Company Number: US-ABBVIE-17K-163-1929958-00

PATIENT
  Sex: Male

DRUGS (1)
  1. HUMIRA [Suspect]
     Active Substance: ADALIMUMAB
     Indication: PRODUCT USED FOR UNKNOWN INDICATION
     Route: 058

REACTIONS (8)
  - Red blood cell sedimentation rate increased [Unknown]
  - Stress [Unknown]
  - Pain in extremity [Unknown]
  - Central nervous system lupus [Unknown]
  - Trigeminal neuralgia [Unknown]
  - Condition aggravated [Unknown]
  - Dyskinesia [Unknown]
  - Memory impairment [Unknown]

NARRATIVE: CASE EVENT DATE: 2009
